FAERS Safety Report 7777602-8 (Version None)
Quarter: 2011Q3

REPORT INFORMATION
  Report Type: 
  Country: None (occurrence: None)
  Receive Date: 20110926
  Receipt Date: 20110921
  Transmission Date: 20111222
  Serious: Yes (Hospitalization)
  Sender: FDA-Public Use
  Company Number: US-VERTEX PHARMACEUTICALS INC.-AE-2011-001573

PATIENT
  Sex: Male
  Weight: 63.56 kg

DRUGS (7)
  1. NEXIUM [Concomitant]
  2. ZOLOFT [Concomitant]
  3. BUSPAR [Concomitant]
  4. INCIVEK [Suspect]
     Indication: HEPATITIS C
     Dates: start: 20110603, end: 20110828
  5. DETROL LA [Concomitant]
  6. PEGASYS [Concomitant]
     Indication: HEPATITIS C
     Dates: start: 20110603
  7. RIBAVIRIN [Concomitant]
     Indication: HEPATITIS C
     Dates: start: 20110603

REACTIONS (2)
  - RASH GENERALISED [None]
  - BURNS THIRD DEGREE [None]
